FAERS Safety Report 24685577 (Version 1)
Quarter: 2024Q4

REPORT INFORMATION
  Report Type: Spontaneous
  Country: FR (occurrence: FR)
  Receive Date: 20241202
  Receipt Date: 20241202
  Transmission Date: 20250115
  Serious: Yes (Other)
  Sender: ROCHE
  Company Number: None

PATIENT
  Age: 19 Year
  Sex: Male
  Weight: 78 kg

DRUGS (5)
  1. OCREVUS [Suspect]
     Active Substance: OCRELIZUMAB
     Indication: Relapsing multiple sclerosis
     Route: 050
     Dates: start: 20240510
  2. ALBUTEROL [Concomitant]
     Active Substance: ALBUTEROL
     Indication: Asthma
     Route: 050
  3. LEVACETYLLEUCINE [Concomitant]
     Active Substance: LEVACETYLLEUCINE
     Dosage: SI BESOIN
     Route: 050
  4. LAMALINE [Concomitant]
     Dosage: SI DOULEURS
     Route: 050
  5. OMEPRAZOLE [Concomitant]
     Active Substance: OMEPRAZOLE
     Route: 050

REACTIONS (2)
  - Tongue oedema [Recovered/Resolved]
  - Lymphopenia [Not Recovered/Not Resolved]

NARRATIVE: CASE EVENT DATE: 20240511
